FAERS Safety Report 12636028 (Version 3)
Quarter: 2016Q4

REPORT INFORMATION
  Report Type: Spontaneous
  Country: US (occurrence: US)
  Receive Date: 20160809
  Receipt Date: 20161124
  Transmission Date: 20170207
  Serious: Yes (Hospitalization)
  Sender: FDA-Public Use
  Company Number: US-ASTRAZENECA-2016SE85099

PATIENT
  Age: 972 Month
  Sex: Female
  Weight: 48.1 kg

DRUGS (7)
  1. TUDORZA PRESSAIR [Suspect]
     Active Substance: ACLIDINIUM BROMIDE
     Indication: LUNG DISORDER
     Route: 055
     Dates: start: 201602
  2. TUDORZA PRESSAIR [Suspect]
     Active Substance: ACLIDINIUM BROMIDE
     Indication: CHRONIC OBSTRUCTIVE PULMONARY DISEASE
     Route: 055
     Dates: start: 201602
  3. ALBUTEROL. [Concomitant]
     Active Substance: ALBUTEROL
     Indication: OBSTRUCTIVE AIRWAYS DISORDER
  4. BROVANA [Concomitant]
     Active Substance: ARFORMOTEROL TARTRATE
  5. ADVAIR HFA [Concomitant]
     Active Substance: FLUTICASONE PROPIONATE\SALMETEROL XINAFOATE
  6. OXYGEN. [Concomitant]
     Active Substance: OXYGEN
     Indication: OBSTRUCTIVE AIRWAYS DISORDER
  7. PROVENTA [Concomitant]

REACTIONS (7)
  - Drug dose omission [Unknown]
  - Device malfunction [Unknown]
  - Underdose [Unknown]
  - Pneumonia [Unknown]
  - Large intestine polyp [Unknown]
  - Muscle spasms [Recovered/Resolved]
  - Post procedural haemorrhage [Unknown]

NARRATIVE: CASE EVENT DATE: 201607
